FAERS Safety Report 15105068 (Version 1)
Quarter: 2018Q3

REPORT INFORMATION
  Report Type: Spontaneous
  Country: US (occurrence: US)
  Receive Date: 20180703
  Receipt Date: 20180703
  Transmission Date: 20181010
  Serious: No
  Sender: FDA-Public Use
  Company Number: US-009507513-1806USA006308

PATIENT
  Age: 16 Year

DRUGS (1)
  1. NEXPLANON [Suspect]
     Active Substance: ETONOGESTREL
     Dosage: 1 ROD, UNK
     Route: 059
     Dates: start: 20180612

REACTIONS (2)
  - Complication of device insertion [Recovered/Resolved]
  - Device breakage [Recovered/Resolved]

NARRATIVE: CASE EVENT DATE: 20180612
